FAERS Safety Report 5877265-2 (Version None)
Quarter: 2008Q3

REPORT INFORMATION
  Report Type: 
  Country: None (occurrence: None)
  Receive Date: 20080908
  Receipt Date: 20080825
  Transmission Date: 20090109
  Serious: Yes (Death, Life-Threatening, Disabling)
  Sender: FDA-Public Use
  Company Number: 000630

PATIENT
  Age: 35 Year
  Sex: Male

DRUGS (5)
  1. BUSULFEX [Suspect]
     Indication: STEM CELL TRANSPLANT
     Dosage: 34 ML, DAILY DOSE INTRAVENOUS
     Route: 042
     Dates: start: 20070501, end: 20070504
  2. CYCLOSPORINE [Suspect]
  3. FLUDARABINE PHOSPHATE [Concomitant]
  4. VALPROATE SODIUM [Concomitant]
  5. FILGRASTIM (FILGRASTIM) [Concomitant]

REACTIONS (9)
  - ACUTE MYELOID LEUKAEMIA RECURRENT [None]
  - CORD BLOOD TRANSPLANT THERAPY [None]
  - ENTEROCOCCAL SEPSIS [None]
  - HYPERKALAEMIA [None]
  - LIVER DISORDER [None]
  - RENAL FAILURE [None]
  - STENOTROPHOMONAS SEPSIS [None]
  - STOMATITIS [None]
  - VENTRICULAR FIBRILLATION [None]
